FAERS Safety Report 25857881 (Version 1)
Quarter: 2025Q3

REPORT INFORMATION
  Report Type: Spontaneous
  Country: CN (occurrence: CN)
  Receive Date: 20250929
  Receipt Date: 20250929
  Transmission Date: 20251021
  Serious: Yes (Other)
  Sender: ALKEM
  Company Number: CN-ALKEM LABORATORIES LIMITED-CN-ALKEM-2025-09842

PATIENT
  Age: 76 Year
  Sex: Female

DRUGS (5)
  1. CLOPIDOGREL [Suspect]
     Active Substance: CLOPIDOGREL BISULFATE
     Indication: Antiplatelet therapy
     Dosage: 75 MILLIGRAM, QD (OVER SIX MONTHS)
     Route: 065
  2. CLOPIDOGREL [Suspect]
     Active Substance: CLOPIDOGREL BISULFATE
     Dosage: 75 MILLIGRAM, QD
     Route: 065
  3. ASPIRIN [Suspect]
     Active Substance: ASPIRIN
     Indication: Antiplatelet therapy
     Dosage: 100 MILLIGRAM, QD
     Route: 065
  4. LECANEMAB [Concomitant]
     Active Substance: LECANEMAB
     Indication: Cognitive disorder
     Route: 065
  5. LECANEMAB [Concomitant]
     Active Substance: LECANEMAB
     Indication: Dementia Alzheimer^s type

REACTIONS (1)
  - Brain stem haemorrhage [Recovering/Resolving]
